FAERS Safety Report 4420567-7 (Version None)
Quarter: 2004Q3

REPORT INFORMATION
  Report Type: 
  Country: None (occurrence: None)
  Receive Date: 20040809
  Receipt Date: 20040331
  Transmission Date: 20050211
  Serious: No
  Sender: FDA-Public Use
  Company Number: US-GLAXOSMITHKLINE-A0505396A

PATIENT
  Sex: Female

DRUGS (6)
  1. PAXIL CR [Suspect]
     Indication: DEPRESSION
     Dosage: 12.5MG PER DAY
     Route: 048
  2. TRAMADOL HCL [Concomitant]
  3. NEURONTIN [Concomitant]
  4. LEVOXYL [Concomitant]
  5. VIOXX [Concomitant]
  6. ATIVAN [Concomitant]

REACTIONS (4)
  - ANXIETY [None]
  - DECREASED APPETITE [None]
  - EUPHORIC MOOD [None]
  - SOMNOLENCE [None]
